FAERS Safety Report 6006074-9 (Version None)
Quarter: 2008Q4

REPORT INFORMATION
  Report Type: 
  Country: None (occurrence: None)
  Receive Date: 20081217
  Receipt Date: 20081208
  Transmission Date: 20090506
  Serious: Yes (Hospitalization, Other)
  Sender: FDA-Public Use
  Company Number: US-ELI_LILLY_AND_COMPANY-US200812001906

PATIENT
  Sex: Female

DRUGS (3)
  1. BYETTA [Suspect]
     Indication: DIABETES MELLITUS
     Dosage: 5 UG, 2/D
     Route: 058
     Dates: start: 20050101, end: 20080601
  2. BYETTA [Suspect]
     Dosage: 10 UG, 2/D
     Route: 058
     Dates: start: 20080601
  3. GLIMEPIRIDE [Concomitant]

REACTIONS (10)
  - BLOOD GLUCOSE DECREASED [None]
  - BLOOD GLUCOSE INCREASED [None]
  - CARDIAC FAILURE CONGESTIVE [None]
  - DYSARTHRIA [None]
  - DYSMORPHISM [None]
  - INTERVERTEBRAL DISC PROTRUSION [None]
  - MULTIPLE SCLEROSIS [None]
  - SPINAL COLUMN STENOSIS [None]
  - SPINAL OSTEOARTHRITIS [None]
  - SYSTEMIC LUPUS ERYTHEMATOSUS [None]
